FAERS Safety Report 18321555 (Version 1)
Quarter: 2020Q3

REPORT INFORMATION
  Report Type: Spontaneous
  Country: HU (occurrence: HU)
  Receive Date: 20200928
  Receipt Date: 20200928
  Transmission Date: 20201103
  Serious: Yes (Other)
  Sender: FDA-Public Use
  Company Number: HU-PFIZER INC-2020368382

PATIENT
  Age: 45 Year
  Sex: Male

DRUGS (1)
  1. LORVIQUA [Suspect]
     Active Substance: LORLATINIB
     Dosage: UNK
     Dates: start: 202001

REACTIONS (1)
  - Central nervous system lesion [Unknown]

NARRATIVE: CASE EVENT DATE: 202007
